FAERS Safety Report 24801817 (Version 3)
Quarter: 2025Q2

REPORT INFORMATION
  Report Type: Spontaneous
  Country: US (occurrence: US)
  Receive Date: 20250102
  Receipt Date: 20250403
  Transmission Date: 20250717
  Serious: No
  Sender: CSL BEHRING
  Company Number: US-BEH-2024188906

PATIENT
  Age: 32 Year
  Sex: Female

DRUGS (2)
  1. RHOPHYLAC [Suspect]
     Active Substance: HUMAN RHO(D) IMMUNE GLOBULIN
     Indication: Rhesus antigen positive
     Route: 030
     Dates: start: 20241218, end: 20241218
  2. RHOPHYLAC [Suspect]
     Active Substance: HUMAN RHO(D) IMMUNE GLOBULIN
     Indication: Rhesus antigen positive
     Route: 030
     Dates: start: 20241218, end: 20241218

REACTIONS (2)
  - Maternal exposure during pregnancy [Unknown]
  - Device defective [Unknown]

NARRATIVE: CASE EVENT DATE: 20241218
